FAERS Safety Report 5955011-1 (Version None)
Quarter: 2008Q4

REPORT INFORMATION
  Report Type: 
  Country: None (occurrence: None)
  Receive Date: 20081117
  Receipt Date: 20081104
  Transmission Date: 20090506
  Serious: Yes (Death, Hospitalization)
  Sender: FDA-Public Use
  Company Number: US-BAYER-200821382GPV

PATIENT
  Age: 39 Year
  Sex: Female

DRUGS (3)
  1. CAMPATH [Suspect]
     Indication: MULTIPLE SCLEROSIS
     Dosage: UNIT DOSE: 24 MG
     Route: 042
     Dates: start: 20030210, end: 20030214
  2. CAMPATH [Suspect]
     Dosage: UNIT DOSE: 24 MG
     Route: 042
     Dates: start: 20040209, end: 20040211
  3. CAMPATH [Suspect]
     Dosage: UNIT DOSE: 24 MG
     Route: 042
     Dates: start: 20050208, end: 20050210

REACTIONS (5)
  - BURKITT'S LYMPHOMA [None]
  - DISSEMINATED INTRAVASCULAR COAGULATION [None]
  - MENINGITIS [None]
  - NEUTROPENIC SEPSIS [None]
  - RENAL FAILURE [None]
